FAERS Safety Report 9384828 (Version 1)
Quarter: 2013Q3

REPORT INFORMATION
  Report Type: Spontaneous
  Country: DK (occurrence: None)
  Receive Date: 20130701
  Receipt Date: 20130701
  Transmission Date: 20140515
  Serious: Yes (Other)
  Sender: FDA-Public Use
  Company Number: AUR-APL-2013-05376

PATIENT
  Sex: 0

DRUGS (7)
  1. RAMIPRIL [Suspect]
     Indication: HYPERTENSION
  2. IRBESARTAN [Suspect]
     Indication: HYPERTENSION
  3. HYDROCHLOROTHIAZIDE [Suspect]
     Indication: HYPERTENSION
  4. MINOXIDIL [Suspect]
     Indication: HYPERTENSION
  5. METOPROLOL TARTRATE [Suspect]
     Indication: HYPERTENSION
  6. FUROSEMIDE [Suspect]
     Indication: HYPERTENSION
  7. AMLODIPINE BESILATE [Suspect]
     Indication: HYPERTENSION

REACTIONS (2)
  - Hypertension [None]
  - Peripheral nerve destruction [None]
